FAERS Safety Report 6142088-6 (Version None)
Quarter: 2009Q2

REPORT INFORMATION
  Report Type: 
  Country: None (occurrence: None)
  Receive Date: 20090402
  Receipt Date: 20090320
  Transmission Date: 20091009
  Serious: Yes (Death)
  Sender: FDA-Public Use
  Company Number: US-TYCO HEALTHCARE/MALLINCKRODT-T200801883

PATIENT
  Age: 56 Year
  Sex: Female

DRUGS (20)
  1. OPTIMARK [Suspect]
     Indication: NUCLEAR MAGNETIC RESONANCE IMAGING BRAIN
     Dosage: UNK
     Dates: start: 20040611, end: 20040611
  2. OMNISCAN [Suspect]
     Indication: NUCLEAR MAGNETIC RESONANCE IMAGING BRAIN
     Dosage: UNK
     Dates: start: 20001221, end: 20001221
  3. OMNISCAN [Suspect]
     Dosage: UNK
     Dates: start: 20010130, end: 20010130
  4. MAGNEVIST [Suspect]
     Indication: NUCLEAR MAGNETIC RESONANCE IMAGING BRAIN
     Dosage: UNK
     Dates: start: 20041024, end: 20041024
  5. LONITEN [Concomitant]
     Dosage: 2.5 MG, QD (AM)
     Route: 048
  6. LIPITOR [Concomitant]
     Dosage: 20 MG, QD (NIGHT)
     Route: 048
  7. COUMADIN [Concomitant]
     Dosage: 3 MG, QD
     Route: 048
  8. LEXAPRO [Concomitant]
     Dosage: 20 MG, QD
     Route: 048
  9. REGLAN [Concomitant]
     Dosage: 10 MG, BID
     Route: 048
  10. NORVASC [Concomitant]
     Dosage: 5 MG, IN AM TUE, THU, SUN
     Route: 048
  11. VASOTEC [Concomitant]
     Dosage: 20 MG, BID
     Route: 048
  12. OXYCODONE HCL [Concomitant]
     Indication: PAIN
     Dosage: 10 MG, BID PRN
     Route: 048
  13. COREG [Concomitant]
     Dosage: 25 MG, BID
     Route: 048
  14. LANOXIN [Concomitant]
     Dosage: 0.125 MG, TUE,THU,SAT,SUN
  15. ATACAND [Concomitant]
     Dosage: 32 MG, QD
     Route: 048
  16. HUMALOG [Concomitant]
     Dosage: 15 UNITS, QD (AM)
  17. HUMALOG [Concomitant]
     Dosage: 10 UNITS, QD (PM)
  18. VENOFER [Concomitant]
     Dosage: 50 MG, MON,WED
     Route: 042
  19. PROCRIT                            /00909301/ [Concomitant]
     Dosage: 25 UNITS, MON,WED,FRI
     Route: 042
  20. ZEMPLAR [Concomitant]
     Dosage: 3 UG, MON,WED,FRI
     Route: 042

REACTIONS (4)
  - BACTERAEMIA [None]
  - DECUBITUS ULCER [None]
  - NEPHROGENIC SYSTEMIC FIBROSIS [None]
  - OEDEMA PERIPHERAL [None]
